FAERS Safety Report 25400424 (Version 1)
Quarter: 2025Q2

REPORT INFORMATION
  Report Type: Spontaneous
  Country: US (occurrence: None)
  Receive Date: 20250603
  Receipt Date: 20250603
  Transmission Date: 20250717
  Serious: No
  Sender: FDA-CTU
  Company Number: None

PATIENT
  Age: 84 Year
  Sex: Male
  Weight: 93 kg

DRUGS (1)
  1. SIMVASTATIN [Suspect]
     Active Substance: SIMVASTATIN
     Indication: Hyperlipidaemia
     Dosage: FREQUENCY : DAILY;?
     Route: 048
     Dates: start: 20240718, end: 20241124

REACTIONS (6)
  - Arthralgia [None]
  - Myalgia [None]
  - Rhabdomyolysis [None]
  - Fall [None]
  - Atrial fibrillation [None]
  - Diverticulitis [None]

NARRATIVE: CASE EVENT DATE: 20241124
